FAERS Safety Report 10334311 (Version 2)
Quarter: 2014Q3

REPORT INFORMATION
  Report Type: Spontaneous
  Country: US (occurrence: None)
  Receive Date: 20140721
  Receipt Date: 20140822
  Transmission Date: 20150326
  Serious: Yes (Other)
  Sender: FDA-Public Use
  Company Number: ADR-2014-01262

PATIENT
  Age: 60 Year
  Sex: Female

DRUGS (2)
  1. BACLOFEN INTRATHECAL-2000.0 MCG/ML [Suspect]
     Active Substance: BACLOFEN
     Indication: MUSCLE SPASTICITY
  2. FENTANYL INTRATHECAL-1000.0 MCG/ML [Suspect]
     Active Substance: FENTANYL

REACTIONS (5)
  - Feeling abnormal [None]
  - Rectocele [None]
  - Feeling cold [None]
  - Proctalgia [None]
  - Paraesthesia [None]
